FAERS Safety Report 4647447-6 (Version None)
Quarter: 2005Q2

REPORT INFORMATION
  Report Type: 
  Country: None (occurrence: None)
  Receive Date: 20050428
  Receipt Date: 20050420
  Transmission Date: 20051028
  Serious: Yes (Hospitalization)
  Sender: FDA-Public Use
  Company Number: US-JNJFOC-20050405559

PATIENT
  Sex: Female

DRUGS (2)
  1. DURAGESIC [Suspect]
     Route: 062
  2. DURAGESIC [Suspect]
     Route: 062

REACTIONS (4)
  - BACTERAEMIA [None]
  - EYE INFECTION FUNGAL [None]
  - FUNGAL INFECTION [None]
  - SEPSIS [None]
